FAERS Safety Report 6922551-8 (Version None)
Quarter: 2010Q3

REPORT INFORMATION
  Report Type: 
  Country: None (occurrence: None)
  Receive Date: 20100813
  Receipt Date: 20100804
  Transmission Date: 20110219
  Serious: Yes (Other)
  Sender: FDA-Public Use
  Company Number: KR-ASTRAZENECA-2010SE33922

PATIENT
  Age: 69 Year
  Sex: Female
  Weight: 45 kg

DRUGS (5)
  1. MEPIVACAINE HCL [Suspect]
     Indication: NERVE BLOCK
     Route: 053
  2. MEPIVACAINE HCL [Suspect]
     Route: 053
  3. MEPIVACAINE HCL [Suspect]
     Route: 053
  4. ANTIHYPERTENSIVE AGENT [Concomitant]
     Indication: HYPERTENSION
  5. MIDAZOLAM HCL [Concomitant]
     Dosage: 1 MG 15 MINUTES BEFORE SURGERY
     Route: 030

REACTIONS (6)
  - BLOOD PRESSURE INCREASED [None]
  - DIZZINESS [None]
  - HEART RATE INCREASED [None]
  - HYPOAESTHESIA ORAL [None]
  - OVERDOSE [None]
  - PARAESTHESIA ORAL [None]
